FAERS Safety Report 8534899 (Version 2)
Quarter: 2012Q4

REPORT INFORMATION
  Report Type: 
  Country: JP (occurrence: JP)
  Receive Date: 20120427
  Receipt Date: 20120910
  Transmission Date: 20130627
  Serious: Yes (Death, Other)
  Sender: FDA-Public Use
  Company Number: PHHY2011JP54845

PATIENT
  Age: 64 Year
  Sex: Male

DRUGS (1)
  1. LEPONEX / CLOZARIL [Suspect]
     Indication: SCHIZOPHRENIA
     Dosage: 300 mg, UNK
     Route: 048
     Dates: start: 20110414, end: 20120323

REACTIONS (6)
  - Pneumonia [Fatal]
  - Megacolon [Unknown]
  - Bacteraemia [Unknown]
  - Salivary hypersecretion [Not Recovered/Not Resolved]
  - Neutrophil count increased [Unknown]
  - Leukopenia [Recovered/Resolved]
